FAERS Safety Report 19030523 (Version 1)
Quarter: 2021Q1

REPORT INFORMATION
  Report Type: Spontaneous
  Country: US (occurrence: US)
  Receive Date: 20210319
  Receipt Date: 20210319
  Transmission Date: 20210420
  Serious: Yes (Hospitalization, Other)
  Sender: FDA-Public Use
  Company Number: US-MICRO LABS LIMITED-ML2021-00807

PATIENT
  Age: 43 Year
  Sex: Female

DRUGS (2)
  1. TIANEPTINE [Suspect]
     Active Substance: TIANEPTINE
  2. DIPHENHYDRAMINE HYDROCHLORIDE. [Suspect]
     Active Substance: DIPHENHYDRAMINE HYDROCHLORIDE

REACTIONS (4)
  - Confusional state [Recovered/Resolved]
  - Lethargy [Recovered/Resolved]
  - Poisoning [Recovered/Resolved]
  - Hallucination [Recovered/Resolved]
